FAERS Safety Report 8271654-7 (Version None)
Quarter: 2012Q1

REPORT INFORMATION
  Report Type: 
  Country: None (occurrence: None)
  Receive Date: 20120327
  Receipt Date: 20100121
  Transmission Date: 20120608
  Serious: Yes (Other)
  Sender: FDA-Public Use
  Company Number: PHEH2009US18233

PATIENT
  Age: 66 Year
  Sex: Male

DRUGS (8)
  1. GLUCOSAMINE/CHONDROITIN /MSM/ (CHRONDROITIN, GLUCOSAMINE, METHYLSULFON [Concomitant]
  2. OMEGA-3-ACID ETHYL ESTERS (LOVAZA) [Concomitant]
  3. VITAMIN D [Concomitant]
  4. ZESTORETIC [Concomitant]
  5. CRESTOR [Concomitant]
  6. ALPHA LIPOIC ACID (THIOCTIC ACID) [Concomitant]
  7. MULTI-VITAMINS [Concomitant]
  8. GLEEVEC [Suspect]
     Indication: CHRONIC MYELOID LEUKAEMIA
     Dosage: 400 MG, DAILY, ORAL ; 300 MG 5 TIMES WEEKLY, 200 MG TWICE WEEKLY
     Route: 048
     Dates: start: 20090801

REACTIONS (7)
  - WHITE BLOOD CELL COUNT DECREASED [None]
  - RED CELL DISTRIBUTION WIDTH INCREASED [None]
  - HAEMOGLOBIN DECREASED [None]
  - HAEMATOCRIT DECREASED [None]
  - PLATELET COUNT DECREASED [None]
  - GROIN PAIN [None]
  - RED BLOOD CELL COUNT DECREASED [None]
